FAERS Safety Report 4288919-6 (Version None)
Quarter: 2004Q1

REPORT INFORMATION
  Report Type: 
  Country: None (occurrence: None)
  Receive Date: 20040205
  Receipt Date: 20030219
  Transmission Date: 20041129
  Serious: Yes (Other)
  Sender: FDA-Public Use
  Company Number: 30012653-C557066-1

PATIENT
  Sex: Female

DRUGS (1)
  1. DIANEAL SOLUTION 1.5% DEXTROSE [Suspect]
     Indication: PERITONEAL DIALYSIS
     Dosage: DOSE 1.5% DEXTROSE

REACTIONS (1)
  - PERITONITIS BACTERIAL [None]
